FAERS Safety Report 7351306-8 (Version None)
Quarter: 2011Q1

REPORT INFORMATION
  Report Type: 
  Country: None (occurrence: None)
  Receive Date: 20110314
  Receipt Date: 20110228
  Transmission Date: 20110831
  Serious: Yes (Other)
  Sender: FDA-Public Use
  Company Number: PHHY2011US17003

PATIENT
  Sex: Female
  Weight: 68.481 kg

DRUGS (1)
  1. RECLAST [Suspect]
     Indication: OSTEOPOROSIS
     Dosage: 5 MG/100ML/YEAR
     Dates: start: 20110225

REACTIONS (4)
  - MYALGIA [None]
  - JOINT EFFUSION [None]
  - ARTHRALGIA [None]
  - PYREXIA [None]
